FAERS Safety Report 17802440 (Version 1)
Quarter: 2020Q2

REPORT INFORMATION
  Report Type: Spontaneous
  Country: US (occurrence: US)
  Receive Date: 20200518
  Receipt Date: 20200518
  Transmission Date: 20200714
  Serious: No
  Sender: FDA-Public Use
  Company Number: None

PATIENT

DRUGS (1)
  1. FOUNDRY HAND SANITIZER NONSTERILE SOLUTION ALCOHOL ANTISEPTIC 80% [Suspect]
     Active Substance: ALCOHOL

REACTIONS (1)
  - Product label confusion [None]
